FAERS Safety Report 5521149-6 (Version None)
Quarter: 2007Q4

REPORT INFORMATION
  Report Type: 
  Country: None (occurrence: None)
  Receive Date: 20071119
  Receipt Date: 20071026
  Transmission Date: 20080405
  Serious: Yes (Other)
  Sender: FDA-Public Use
  Company Number: FR-AVENTIS-200713491FR

PATIENT
  Age: 63 Year
  Sex: Male
  Weight: 104 kg

DRUGS (3)
  1. GLYBURIDE [Suspect]
     Route: 048
  2. ACOMPLIA [Suspect]
     Indication: OBESITY
     Route: 048
     Dates: start: 20070501, end: 20070730
  3. ACOMPLIA [Suspect]
     Route: 048
     Dates: start: 20070501, end: 20070730

REACTIONS (6)
  - DIPLOPIA [None]
  - HYPOGLYCAEMIA [None]
  - INSOMNIA [None]
  - MUSCLE SPASMS [None]
  - NERVOUSNESS [None]
  - ROAD TRAFFIC ACCIDENT [None]
